FAERS Safety Report 6532178-8 (Version None)
Quarter: 2010Q1

REPORT INFORMATION
  Report Type: 
  Country: None (occurrence: None)
  Receive Date: 20100108
  Receipt Date: 20091229
  Transmission Date: 20100710
  Serious: Yes (Other)
  Sender: FDA-Public Use
  Company Number: CO-PFIZER INC-2009315407

PATIENT
  Age: 55 Year
  Sex: Female

DRUGS (3)
  1. DOSTINEX [Suspect]
     Indication: PITUITARY TUMOUR
     Dosage: 0.5 MG, UNK
     Route: 048
     Dates: start: 20090528
  2. LEVOTHYROXINE [Concomitant]
     Indication: THYROID DISORDER
     Dosage: 50 MG, 1X/DAY
  3. ACETAMINOPHEN [Concomitant]
     Indication: HEADACHE
     Dosage: 50 MG, 1X/DAY

REACTIONS (1)
  - BRONCHOSPASM [None]
